FAERS Safety Report 5985315-8 (Version None)
Quarter: 2008Q4

REPORT INFORMATION
  Report Type: 
  Country: None (occurrence: None)
  Receive Date: 20081208
  Receipt Date: 20080317
  Transmission Date: 20090506
  Serious: No
  Sender: FDA-Public Use
  Company Number: US-AMGEN-KDL270070

PATIENT
  Sex: Female

DRUGS (2)
  1. ENBREL [Suspect]
     Indication: RHEUMATOID ARTHRITIS
     Route: 058
     Dates: start: 20070101
  2. METHOTREXATE [Concomitant]
     Dates: start: 20050101

REACTIONS (5)
  - INJECTION SITE HAEMATOMA [None]
  - INJECTION SITE PAIN [None]
  - SKIN ODOUR ABNORMAL [None]
  - URINARY TRACT INFECTION [None]
  - VAGINAL INFECTION [None]
